FAERS Safety Report 12243630 (Version 1)
Quarter: 2016Q2

REPORT INFORMATION
  Report Type: Spontaneous
  Country: JP (occurrence: JP)
  Receive Date: 20160406
  Receipt Date: 20160406
  Transmission Date: 20160815
  Serious: Yes (Hospitalization, Other)
  Sender: FDA-Public Use
  Company Number: JP-HQ SPECIALTY-JP-2016INT000149

PATIENT
  Age: 66 Year
  Sex: Male

DRUGS (12)
  1. CISPLATIN. [Suspect]
     Active Substance: CISPLATIN
     Indication: OESOPHAGEAL CARCINOMA
     Dosage: UNK
  2. OTERACIL [Suspect]
     Active Substance: OTERACIL
     Indication: OESOPHAGEAL CARCINOMA
     Dosage: UNK
  3. GIMERACIL [Suspect]
     Active Substance: GIMERACIL
     Indication: GASTRIC CANCER
  4. OTERACIL [Suspect]
     Active Substance: OTERACIL
     Indication: GASTRIC CANCER
  5. TEGAFUR [Suspect]
     Active Substance: TEGAFUR
     Indication: OESOPHAGEAL CARCINOMA
     Dosage: UNK
  6. CISPLATIN. [Suspect]
     Active Substance: CISPLATIN
     Indication: GASTRIC CANCER
  7. DOCETAXEL. [Suspect]
     Active Substance: DOCETAXEL
     Indication: GASTRIC CANCER
  8. GIMERACIL [Suspect]
     Active Substance: GIMERACIL
     Indication: OESOPHAGEAL CARCINOMA
     Dosage: UNK
  9. GRANULOCYTE COLONY STIMULATING FACTOR [Suspect]
     Active Substance: GRANULOCYTE COLONY-STIMULATING FACTOR NOS
     Indication: OESOPHAGEAL CARCINOMA
     Dosage: UNK
  10. TEGAFUR [Suspect]
     Active Substance: TEGAFUR
     Indication: GASTRIC CANCER
  11. GRANULOCYTE COLONY STIMULATING FACTOR [Suspect]
     Active Substance: GRANULOCYTE COLONY-STIMULATING FACTOR NOS
     Indication: GASTRIC CANCER
  12. DOCETAXEL. [Suspect]
     Active Substance: DOCETAXEL
     Indication: OESOPHAGEAL CARCINOMA
     Dosage: UNK

REACTIONS (14)
  - Septic shock [Recovering/Resolving]
  - Disseminated intravascular coagulation [Recovering/Resolving]
  - Hyponatraemia [Recovering/Resolving]
  - Anaemia [Recovering/Resolving]
  - Thrombocytopenia [Recovering/Resolving]
  - Hepatic function abnormal [Recovering/Resolving]
  - Leukopenia [Recovering/Resolving]
  - Procalcitonin increased [Recovering/Resolving]
  - Respiratory arrest [Recovering/Resolving]
  - Hypokalaemia [Recovering/Resolving]
  - Pyrexia [Recovering/Resolving]
  - Diarrhoea [Recovering/Resolving]
  - C-reactive protein increased [Recovering/Resolving]
  - Enterobacter test positive [Recovering/Resolving]
